FAERS Safety Report 24201097 (Version 5)
Quarter: 2024Q4

REPORT INFORMATION
  Report Type: Report from Study
  Country: US (occurrence: US)
  Receive Date: 20240812
  Receipt Date: 20241218
  Transmission Date: 20250115
  Serious: Yes (Hospitalization, Other)
  Sender: ABBVIE
  Company Number: US-ALLERGAN-2232420US

PATIENT
  Age: 67 Year
  Sex: Female

DRUGS (9)
  1. LINZESS [Suspect]
     Active Substance: LINACLOTIDE
     Indication: Constipation
     Dosage: FORM STRENGTH: 145 MICROGRAM
     Route: 048
     Dates: start: 202206, end: 20220626
  2. LINZESS [Suspect]
     Active Substance: LINACLOTIDE
     Indication: Constipation
     Dosage: DAILY DOSE: 290.0 ?G, TOTAL: 3190.0 ?G
     Route: 048
     Dates: start: 20220624, end: 20220704
  3. LINZESS [Suspect]
     Active Substance: LINACLOTIDE
     Indication: Constipation
     Dosage: FORM STRENGTH: 290 MICROGRAM, 1 TIME IN MORNING
     Route: 048
     Dates: start: 20220705, end: 20240619
  4. LINZESS [Suspect]
     Active Substance: LINACLOTIDE
     Indication: Constipation
     Route: 048
     Dates: start: 20210101
  5. LINZESS [Suspect]
     Active Substance: LINACLOTIDE
     Indication: Constipation
     Route: 048
  6. MODERNA COVID-19 VACCINE [Suspect]
     Active Substance: ELASOMERAN
     Indication: COVID-19 immunisation
     Dosage: TIME INTERVAL: AS NECESSARY: MODERNA 5TH DOSE
     Route: 030
     Dates: start: 20220927, end: 20220927
  7. MIRALAX [Concomitant]
     Active Substance: POLYETHYLENE GLYCOL 3350
     Indication: Product used for unknown indication
     Dates: start: 2019
  8. ELAHERE [Concomitant]
     Active Substance: MIRVETUXIMAB SORAVTANSINE-GYNX
     Indication: Immunomodulatory therapy
     Dates: start: 202411
  9. HYOSCYAMINE [Concomitant]
     Active Substance: HYOSCYAMINE
     Indication: Product used for unknown indication
     Dates: start: 2019

REACTIONS (12)
  - Pneumonia [Recovering/Resolving]
  - Gastrointestinal motility disorder [Recovered/Resolved]
  - Ovarian cancer metastatic [Not Recovered/Not Resolved]
  - Anxiety [Not Recovered/Not Resolved]
  - Malaise [Unknown]
  - Asthma [Unknown]
  - Metastatic neoplasm [Not Recovered/Not Resolved]
  - Pneumonitis [Unknown]
  - Liver injury [Unknown]
  - Hepatic enzyme increased [Unknown]
  - Pneumonia pseudomonal [Recovered/Resolved]
  - Lymphoedema [Not Recovered/Not Resolved]

NARRATIVE: CASE EVENT DATE: 20211012
